FAERS Safety Report 17063407 (Version 1)
Quarter: 2019Q4

REPORT INFORMATION
  Report Type: Spontaneous
  Country: US (occurrence: US)
  Receive Date: 20191122
  Receipt Date: 20191122
  Transmission Date: 20200122
  Serious: Yes (Other)
  Sender: FDA-Public Use
  Company Number: US-ZYDUS-043415

PATIENT
  Age: 23 Year
  Sex: Male

DRUGS (6)
  1. THIAMAZOLE [Suspect]
     Active Substance: METHIMAZOLE
     Indication: THYROTOXIC PERIODIC PARALYSIS
     Route: 048
  2. PROPRANOLOL [Suspect]
     Active Substance: PROPRANOLOL HYDROCHLORIDE
     Indication: THYROTOXIC PERIODIC PARALYSIS
     Route: 048
  3. POTASSIUM [Suspect]
     Active Substance: POTASSIUM
     Indication: THYROTOXIC PERIODIC PARALYSIS
     Dosage: 2 DOSES OF 10 MEQ EVERY 2 HOURS
     Route: 042
  4. PROPRANOLOL [Suspect]
     Active Substance: PROPRANOLOL HYDROCHLORIDE
     Indication: THYROTOXIC PERIODIC PARALYSIS
     Dosage: 3 DOSES OF IV PROPRANOLOL?1MG EVERY 4 HOURS
     Route: 042
  5. POTASSIUM [Suspect]
     Active Substance: POTASSIUM
     Indication: THYROTOXIC PERIODIC PARALYSIS
     Dosage: 40 MEQ
     Route: 048
  6. POTASSIUM [Suspect]
     Active Substance: POTASSIUM
     Indication: THYROTOXIC PERIODIC PARALYSIS
     Route: 048

REACTIONS (1)
  - Hyperkalaemia [Recovered/Resolved]
